FAERS Safety Report 24555844 (Version 1)
Quarter: 2024Q4

REPORT INFORMATION
  Report Type: Spontaneous
  Country: US (occurrence: US)
  Receive Date: 20241028
  Receipt Date: 20241028
  Transmission Date: 20250115
  Serious: Yes (Other)
  Sender: PFIZER
  Company Number: US-PFIZER INC-202400286733

PATIENT
  Age: 83 Year
  Sex: Female

DRUGS (1)
  1. IBRANCE [Suspect]
     Active Substance: PALBOCICLIB
     Dosage: 125 MG, FOR 3 WEEKS, FOLLOWED BY 1 WEEK OFF AND THEN REPEAT THE CYCLE
     Route: 048

REACTIONS (1)
  - Pulmonary fibrosis [Unknown]
